FAERS Safety Report 5126025-9 (Version None)
Quarter: 2006Q4

REPORT INFORMATION
  Report Type: 
  Country: None (occurrence: None)
  Receive Date: 20061012
  Receipt Date: 20060927
  Transmission Date: 20070319
  Serious: Yes (Life-Threatening, Hospitalization)
  Sender: FDA-Public Use
  Company Number: 2006UW18872

PATIENT
  Age: 19567 Day
  Sex: Female
  Weight: 58 kg

DRUGS (5)
  1. CRESTOR [Suspect]
     Indication: DYSLIPIDAEMIA
     Route: 048
     Dates: start: 20060904, end: 20060910
  2. PURAN T4 [Concomitant]
     Indication: HYPOTHYROIDISM
  3. PANTOPRAZOL [Concomitant]
     Indication: GASTRITIS
  4. DOMPERIDONA [Concomitant]
     Indication: HYPERTENSION
  5. APROZIDE [Concomitant]
     Indication: HYPERTENSION

REACTIONS (9)
  - ASTHENIA [None]
  - BLOOD CREATINE PHOSPHOKINASE INCREASED [None]
  - DEHYDRATION [None]
  - HYPERTENSIVE CRISIS [None]
  - MALAISE [None]
  - MUSCLE SPASMS [None]
  - MYALGIA [None]
  - MYOPATHY [None]
  - VOMITING [None]
